FAERS Safety Report 13288053 (Version 1)
Quarter: 2017Q1

REPORT INFORMATION
  Report Type: Report from Study
  Country: US (occurrence: US)
  Receive Date: 20170302
  Receipt Date: 20170302
  Transmission Date: 20170428
  Serious: Yes (Hospitalization)
  Sender: FDA-Public Use
  Company Number: US-ROCHE-1717636

PATIENT
  Age: 40 Year
  Sex: Female
  Weight: 92 kg

DRUGS (12)
  1. BENADRYL [Concomitant]
     Active Substance: DIPHENHYDRAMINE HYDROCHLORIDE
     Indication: PREMEDICATION
     Route: 048
     Dates: start: 20160114, end: 20160114
  2. OBINUTUZUMAB [Suspect]
     Active Substance: OBINUTUZUMAB
     Indication: END STAGE RENAL DISEASE
     Dosage: START TIME: 11:07
     Route: 042
     Dates: start: 20160114, end: 20160114
  3. VELPHORO [Concomitant]
     Active Substance: FERRIC OXYHYDROXIDE
     Indication: BLOOD PHOSPHORUS DECREASED
     Route: 048
  4. TYLENOL [Concomitant]
     Active Substance: ACETAMINOPHEN
     Indication: PREMEDICATION
     Dosage: DOSE: MG
     Route: 048
     Dates: start: 20160114, end: 20160114
  5. CHEWABLE ASPIRIN [Concomitant]
     Active Substance: ASPIRIN
     Indication: PAIN
     Route: 048
     Dates: start: 20160211, end: 20160211
  6. CYCLOBENZAPRINE [Concomitant]
     Active Substance: CYCLOBENZAPRINE
     Indication: MUSCLE SPASMS
     Route: 048
     Dates: start: 20160212, end: 20160301
  7. LEVOFLOXACIN. [Concomitant]
     Active Substance: LEVOFLOXACIN
     Route: 048
     Dates: start: 20160212
  8. ACETAMINOPHEN. [Concomitant]
     Active Substance: ACETAMINOPHEN
     Indication: PAIN
     Route: 048
     Dates: start: 20160211, end: 20160211
  9. MORPHINE [Concomitant]
     Active Substance: MORPHINE
     Indication: PAIN
     Route: 042
     Dates: start: 20160211, end: 20160211
  10. SOLU-MEDROL [Concomitant]
     Active Substance: METHYLPREDNISOLONE SODIUM SUCCINATE
     Indication: PREMEDICATION
     Dosage: DOSE: MG
     Route: 048
     Dates: start: 20160114, end: 20160114
  11. IOHEXOL [Concomitant]
     Active Substance: IOHEXOL
     Route: 042
     Dates: start: 20160211, end: 20160211
  12. CHEWABLE ASPIRIN [Concomitant]
     Active Substance: ASPIRIN
     Route: 048
     Dates: start: 20160212

REACTIONS (1)
  - Pneumonia [Recovered/Resolved]

NARRATIVE: CASE EVENT DATE: 20160210
